FAERS Safety Report 6614113-7 (Version None)
Quarter: 2010Q1

REPORT INFORMATION
  Report Type: 
  Country: None (occurrence: None)
  Receive Date: 20100304
  Receipt Date: 20100301
  Transmission Date: 20100710
  Serious: Yes (Hospitalization)
  Sender: FDA-Public Use
  Company Number: ES-TEVA-226013ISR

PATIENT
  Age: 75 Year
  Sex: Female

DRUGS (3)
  1. IBUPROFEN [Suspect]
  2. AMOXICILLIN AND CLAVULANATE POTASSIUM [Concomitant]
     Indication: WOUND
  3. FUROSEMIDE [Concomitant]
     Indication: OEDEMA PERIPHERAL

REACTIONS (3)
  - HYPERKALAEMIA [None]
  - PARALYSIS [None]
  - RENAL FAILURE ACUTE [None]
